FAERS Safety Report 6148220-2 (Version None)
Quarter: 2009Q2

REPORT INFORMATION
  Report Type: 
  Country: None (occurrence: None)
  Receive Date: 20090402
  Receipt Date: 20090122
  Transmission Date: 20091009
  Serious: No
  Sender: FDA-Public Use
  Company Number: 1000004549

PATIENT

DRUGS (1)
  1. BYSTOLIC [Suspect]
     Dosage: 40 MG (40 MG, 1 IN 1 D)

REACTIONS (1)
  - BLOOD PRESSURE INADEQUATELY CONTROLLED [None]
